FAERS Safety Report 5821053-X (Version None)
Quarter: 2008Q3

REPORT INFORMATION
  Report Type: 
  Country: None (occurrence: None)
  Receive Date: 20080721
  Receipt Date: 20080709
  Transmission Date: 20090109
  Serious: Yes (Hospitalization)
  Sender: FDA-Public Use
  Company Number: 2008AL008168

PATIENT
  Age: 67 Year
  Sex: Male
  Weight: 75.7507 kg

DRUGS (7)
  1. DIGOXIN [Suspect]
     Indication: CARDIAC DISORDER
     Dosage: PO
     Route: 048
     Dates: start: 20010101
  2. COLCHINE [Concomitant]
  3. LASIX [Concomitant]
  4. CATAPRIL [Concomitant]
  5. K-DUR [Concomitant]
  6. CALCIUM [Concomitant]
  7. COUMADIN [Concomitant]

REACTIONS (6)
  - ASTHENIA [None]
  - CARDIOACTIVE DRUG LEVEL INCREASED [None]
  - FATIGUE [None]
  - GOUT [None]
  - HYPOTENSION [None]
  - SLEEP APNOEA SYNDROME [None]
